FAERS Safety Report 4689570-6 (Version None)
Quarter: 2005Q2

REPORT INFORMATION
  Report Type: 
  Country: None (occurrence: None)
  Receive Date: 20050613
  Receipt Date: 20050613
  Transmission Date: 20051028
  Serious: Yes (Hospitalization)
  Sender: FDA-Public Use
  Company Number: None

PATIENT
  Sex: Female
  Weight: 65 kg

DRUGS (11)
  1. ZARNESTRA R115777 [Suspect]
     Indication: ACUTE MYELOID LEUKAEMIA
     Dosage: 600 MG PO BID
     Route: 048
     Dates: start: 20050519, end: 20050530
  2. ZARNESTRA R115777 [Suspect]
     Indication: ACUTE MYELOID LEUKAEMIA
     Dosage: 600 MG PO BID
     Route: 048
     Dates: start: 20050602, end: 20050610
  3. BACTRIM DS [Concomitant]
  4. POTASSIUM CHLORIDE [Concomitant]
  5. METFORMIN HCL [Concomitant]
  6. DARVON [Concomitant]
  7. XANAX [Concomitant]
  8. LEVOTHYROXINE SODIUM [Concomitant]
  9. MAGNESIUM OXIDE [Concomitant]
  10. LEXAPRO [Concomitant]
  11. HYDROCORTISONE [Concomitant]

REACTIONS (5)
  - BLOOD CREATININE INCREASED [None]
  - DEHYDRATION [None]
  - DRUG TOXICITY [None]
  - FATIGUE [None]
  - ORAL INTAKE REDUCED [None]
